FAERS Safety Report 14961406 (Version 1)
Quarter: 2018Q2

REPORT INFORMATION
  Report Type: Spontaneous
  Country: DE (occurrence: DE)
  Receive Date: 20180601
  Receipt Date: 20180601
  Transmission Date: 20180711
  Serious: Yes (Hospitalization)
  Sender: FDA-Public Use
  Company Number: PHHY2009DE075272

PATIENT
  Age: 43 Year
  Sex: Male
  Weight: 83 kg

DRUGS (5)
  1. SIMVASTATIN. [Suspect]
     Active Substance: SIMVASTATIN
     Indication: HYPERLIPIDAEMIA
     Dosage: 40 MG, QD
     Route: 048
  2. PILOCARPIN [Concomitant]
     Indication: GLAUCOMA
     Route: 065
  3. TRAMADOL. [Suspect]
     Active Substance: TRAMADOL
     Indication: NECK PAIN
     Route: 048
  4. FLUPIRTINE [Suspect]
     Active Substance: FLUPIRTINE
     Indication: NECK PAIN
     Dosage: 400 MG, QD
     Route: 048
     Dates: start: 20090414
  5. IBUPROFEN. [Suspect]
     Active Substance: IBUPROFEN
     Indication: NECK PAIN
     Dosage: 400 MG, QD
     Route: 048

REACTIONS (2)
  - Transaminases increased [Recovered/Resolved]
  - Hepatitis [Recovered/Resolved]

NARRATIVE: CASE EVENT DATE: 20090519
